FAERS Safety Report 9031378 (Version 5)
Quarter: 2013Q1

REPORT INFORMATION
  Report Type: Spontaneous
  Country: DK (occurrence: DK)
  Receive Date: 20130124
  Receipt Date: 20130315
  Transmission Date: 20140127
  Serious: Yes (Other)
  Sender: FDA-Public Use
  Company Number: DK-PFIZER INC-2013015663

PATIENT
  Sex: Female

DRUGS (23)
  1. EPIRUBICIN HCL [Suspect]
     Indication: BREAST CANCER
     Dosage: UNK
     Route: 065
  2. EPIRUBICIN HCL [Suspect]
     Indication: BREAST CANCER METASTATIC
  3. FLUOROURACIL [Suspect]
     Indication: BREAST CANCER
     Dosage: UNK
     Route: 065
  4. FLUOROURACIL [Suspect]
     Indication: BREAST CANCER METASTATIC
  5. VINORELBINE [Suspect]
     Indication: BREAST CANCER
     Dosage: UNK
     Route: 065
     Dates: start: 201004, end: 201107
  6. VINORELBINE [Suspect]
     Indication: BREAST CANCER METASTATIC
  7. HERCEPTIN [Suspect]
     Indication: BREAST CANCER
     Dosage: UNK
     Route: 065
     Dates: start: 200802
  8. HERCEPTIN [Suspect]
     Indication: BREAST CANCER METASTATIC
     Dosage: UNK
     Route: 065
     Dates: start: 201008
  9. HERCEPTIN [Suspect]
     Dosage: UNK
     Route: 065
     Dates: start: 201101
  10. TAXOTERE [Suspect]
     Indication: BREAST CANCER
     Dosage: UNK
     Route: 065
     Dates: start: 200802
  11. TAXOTERE [Suspect]
     Indication: PRODUCT USED FOR UNKNOWN INDICATION
     Dosage: UNK
     Route: 065
     Dates: start: 201008
  12. TAXOTERE [Suspect]
     Dosage: UNK
     Route: 065
     Dates: start: 201101
  13. XELODA [Suspect]
     Indication: BREAST CANCER
     Dosage: UNK
     Route: 048
     Dates: start: 20081025, end: 20100416
  14. XELODA [Suspect]
     Indication: BREAST CANCER METASTATIC
     Dosage: UNK
     Route: 048
     Dates: start: 201101
  15. BONDRONAT [Suspect]
     Indication: BREAST CANCER
     Dosage: UNK
     Route: 065
     Dates: start: 201101
  16. BONDRONAT [Suspect]
     Indication: PRODUCT USED FOR UNKNOWN INDICATION
  17. SENDOXAN [Suspect]
     Indication: BREAST CANCER
     Dosage: UNK
     Route: 065
  18. SENDOXAN [Suspect]
     Indication: BREAST CANCER METASTATIC
  19. LAPATINIB [Suspect]
     Indication: BREAST CANCER
     Dosage: UNK
     Route: 065
  20. LAPATINIB [Suspect]
     Indication: PRODUCT USED FOR UNKNOWN INDICATION
  21. TAXOL [Suspect]
     Indication: BREAST CANCER
     Dosage: UNK
     Route: 065
  22. TAXOL [Suspect]
     Indication: PRODUCT USED FOR UNKNOWN INDICATION
  23. NEXIUM [Concomitant]
     Indication: GASTROOESOPHAGEAL REFLUX DISEASE
     Dosage: 40 MG, 1X/DAY
     Route: 048
     Dates: start: 20090925

REACTIONS (7)
  - Joint ankylosis [Unknown]
  - Rash [Unknown]
  - Palmar-plantar erythrodysaesthesia syndrome [Unknown]
  - Dermatitis [Recovering/Resolving]
  - Disease progression [Not Recovered/Not Resolved]
  - Breast cancer [Not Recovered/Not Resolved]
  - Palmar-plantar erythrodysaesthesia syndrome [Not Recovered/Not Resolved]
